FAERS Safety Report 9179625 (Version 1)
Quarter: 2012Q4

REPORT INFORMATION
  Report Type: 
  Country: US (occurrence: US)
  Receive Date: 20121029
  Receipt Date: 20121029
  Transmission Date: 20130627
  Serious: Yes (Death)
  Sender: FDA-Public Use
  Company Number: US-GLAXOSMITHKLINE-A0998893A

PATIENT
  Age: 23 Year
  Sex: Male

DRUGS (3)
  1. POTIGA [Suspect]
     Indication: PARTIAL SEIZURES
     Dosage: 300MG Twice per day
     Route: 048
     Dates: start: 201207, end: 201210
  2. VIMPAT [Concomitant]
  3. KEPPRA [Concomitant]

REACTIONS (1)
  - Sudden unexplained death in epilepsy [Fatal]
